FAERS Safety Report 16425427 (Version 1)
Quarter: 2019Q2

REPORT INFORMATION
  Report Type: Spontaneous
  Country: US (occurrence: US)
  Receive Date: 20190613
  Receipt Date: 20190613
  Transmission Date: 20190711
  Serious: Yes (Other)
  Sender: FDA-Public Use
  Company Number: US-KALA PHARAMACEUTICALS-2019KLA00016

PATIENT
  Sex: Male

DRUGS (1)
  1. INVELTYS [Suspect]
     Active Substance: LOTEPREDNOL ETABONATE
     Indication: UVEITIS

REACTIONS (2)
  - Drug ineffective for unapproved indication [Unknown]
  - Uveitis [Unknown]
